FAERS Safety Report 13363400 (Version 1)
Quarter: 2017Q1

REPORT INFORMATION
  Report Type: Spontaneous
  Country: GB (occurrence: GB)
  Receive Date: 20170323
  Receipt Date: 20170323
  Transmission Date: 20170429
  Serious: Yes (Hospitalization)
  Sender: FDA-Public Use
  Company Number: GB-ABBVIE-17P-167-1918325-00

PATIENT
  Sex: Male

DRUGS (10)
  1. SODIUM VALPROATE [Suspect]
     Active Substance: VALPROATE SODIUM
     Dosage: GASTRO-RESISTANT TABLET, AT BEDTIME
     Route: 048
  2. CITALOPRAM [Concomitant]
     Active Substance: CITALOPRAM HYDROBROMIDE
     Indication: EPILEPSY
  3. PRIMIDONE. [Concomitant]
     Active Substance: PRIMIDONE
     Indication: EPILEPSY
  4. THIAMINE. [Concomitant]
     Active Substance: THIAMINE
     Indication: EPILEPSY
  5. AMLODIPINE [Concomitant]
     Active Substance: AMLODIPINE BESYLATE
     Indication: EPILEPSY
  6. BENDROFLUMETHIAZIDE [Concomitant]
     Active Substance: BENDROFLUMETHIAZIDE
     Indication: EPILEPSY
  7. CLONAZEPAM. [Concomitant]
     Active Substance: CLONAZEPAM
     Indication: EPILEPSY
  8. SODIUM VALPROATE [Suspect]
     Active Substance: VALPROATE SODIUM
     Indication: EPILEPSY
     Dosage: GASTRO-RESISTANT TABLET
     Route: 048
  9. ZOPICLONE [Concomitant]
     Active Substance: ZOPICLONE
     Indication: EPILEPSY
  10. ZONISAMIDE. [Concomitant]
     Active Substance: ZONISAMIDE
     Indication: EPILEPSY

REACTIONS (7)
  - Choking sensation [Unknown]
  - Tremor [Unknown]
  - Incorrect product storage [Unknown]
  - Hypokinesia [Unknown]
  - Seizure [Unknown]
  - Drug ineffective [Unknown]
  - Productive cough [Unknown]

NARRATIVE: CASE EVENT DATE: 20161017
